FAERS Safety Report 6649957-9 (Version None)
Quarter: 2010Q1

REPORT INFORMATION
  Report Type: 
  Country: None (occurrence: None)
  Receive Date: 20100325
  Receipt Date: 20100311
  Transmission Date: 20100710
  Serious: Yes (Other)
  Sender: FDA-Public Use
  Company Number: US-RANBAXY-2010RR-32543

PATIENT
  Age: 38 Year
  Sex: Female

DRUGS (4)
  1. MINOCYCLINE HYDROCHLORIDE [Suspect]
     Indication: ACNE
  2. QUINAPRIL [Concomitant]
  3. HYDROCHLOROTHIAZIDE [Concomitant]
  4. MONTELUKAST SODIUM [Concomitant]

REACTIONS (2)
  - DRUG RASH WITH EOSINOPHILIA AND SYSTEMIC SYMPTOMS [None]
  - MYOCARDITIS [None]
